FAERS Safety Report 7400063-5 (Version None)
Quarter: 2011Q2

REPORT INFORMATION
  Report Type: 
  Country: None (occurrence: None)
  Receive Date: 20110407
  Receipt Date: 20110401
  Transmission Date: 20111010
  Serious: Yes (Other)
  Sender: FDA-Public Use
  Company Number: FR-PFIZER INC-2011072923

PATIENT
  Age: 41 Year
  Sex: Female

DRUGS (5)
  1. ENDOXAN [Suspect]
     Indication: BREAST CANCER
     Dosage: 4 COURSES
     Dates: start: 20070101, end: 20070101
  2. ADRIBLASTINE [Suspect]
     Indication: BREAST CANCER
     Dosage: 120 MG (4 COURSES)
     Dates: start: 20070101, end: 20070101
  3. ANTIEMETICS AND ANTINAUSEANTS [Concomitant]
  4. SOLU-MEDROL [Concomitant]
  5. TAXOTERE [Suspect]
     Indication: BREAST CANCER
     Dosage: 4 COURSES
     Dates: start: 20070101, end: 20070101

REACTIONS (1)
  - MELANOCYTIC NAEVUS [None]
